FAERS Safety Report 14226848 (Version 1)
Quarter: 2017Q4

REPORT INFORMATION
  Report Type: Spontaneous
  Country: US (occurrence: US)
  Receive Date: 20171127
  Receipt Date: 20171127
  Transmission Date: 20180321
  Serious: Yes (Other)
  Sender: FDA-Public Use
  Company Number: US-GLAXOSMITHKLINE-US2017GSK180004

PATIENT
  Sex: Female

DRUGS (1)
  1. LAMICTAL [Suspect]
     Active Substance: LAMOTRIGINE
     Indication: PRODUCT USED FOR UNKNOWN INDICATION
     Dosage: UNK
     Route: 065

REACTIONS (10)
  - Blindness [Unknown]
  - Mucous membrane disorder [Unknown]
  - Toxic epidermal necrolysis [Unknown]
  - Mouth injury [Unknown]
  - Rash [Unknown]
  - Stevens-Johnson syndrome [Unknown]
  - Skin injury [Unknown]
  - Multiple organ dysfunction syndrome [Unknown]
  - Eye injury [Unknown]
  - Inflammation [Unknown]
